FAERS Safety Report 7026636-X (Version None)
Quarter: 2010Q4

REPORT INFORMATION
  Report Type: 
  Country: None (occurrence: None)
  Receive Date: 20101004
  Receipt Date: 20100928
  Transmission Date: 20110411
  Serious: Yes (Other)
  Sender: FDA-Public Use
  Company Number: US-TEVA-249979USA

PATIENT

DRUGS (1)
  1. ALENDRONAT SODIUM, TABLETS, 5MG, 10MG, 40MG, 35MG, 70MG [Suspect]
     Route: 048

REACTIONS (8)
  - DYSPHONIA [None]
  - DYSPNOEA [None]
  - OROPHARYNGEAL PAIN [None]
  - SCAR [None]
  - THERMAL BURN [None]
  - THROAT IRRITATION [None]
  - VOCAL CORD DISORDER [None]
  - WHEEZING [None]
